FAERS Safety Report 7452971-7 (Version None)
Quarter: 2011Q2

REPORT INFORMATION
  Report Type: 
  Country: None (occurrence: None)
  Receive Date: 20110502
  Receipt Date: 20110419
  Transmission Date: 20111010
  Serious: Yes (Other)
  Sender: FDA-Public Use
  Company Number: CA-JNJFOC-20110409079

PATIENT
  Sex: Female
  Weight: 84 kg

DRUGS (5)
  1. DEPO-PROVERA [Concomitant]
  2. REMICADE [Suspect]
     Indication: RHEUMATOID ARTHRITIS
     Route: 042
  3. PREDNISONE [Concomitant]
  4. REMICADE [Suspect]
     Indication: CROHN'S DISEASE
     Route: 042
  5. LOMOTIL [Concomitant]

REACTIONS (1)
  - DIABETES MELLITUS [None]
